FAERS Safety Report 4307887-1 (Version None)
Quarter: 2004Q1

REPORT INFORMATION
  Report Type: 
  Country: None (occurrence: None)
  Receive Date: 20040226
  Receipt Date: 20030115
  Transmission Date: 20041129
  Serious: Yes (Hospitalization)
  Sender: FDA-Public Use
  Company Number: 2002132351US

PATIENT
  Age: 70 Year
  Sex: Male
  Weight: 83.9 kg

DRUGS (4)
  1. CELEBREX [Suspect]
     Indication: ARTHRALGIA
     Dosage: 200 MG, QD, ORAL
     Dates: start: 20010201, end: 20021024
  2. MONOPRIL [Concomitant]
  3. ZOCOR [Concomitant]
  4. HYTRIN [Concomitant]

REACTIONS (5)
  - ASTHENIA [None]
  - DIZZINESS [None]
  - DUODENAL ULCER HAEMORRHAGE [None]
  - HYPERHIDROSIS [None]
  - NAUSEA [None]
